FAERS Safety Report 8504985-3 (Version None)
Quarter: 2012Q3

REPORT INFORMATION
  Report Type: 
  Country: None (occurrence: None)
  Receive Date: 20120712
  Receipt Date: 20120702
  Transmission Date: 20120928
  Serious: Yes (Hospitalization, Other)
  Sender: FDA-Public Use
  Company Number: JP-VERTEX PHARMACEUTICALS INC.-AE-2012-007324

PATIENT
  Age: 64 Year
  Sex: Male

DRUGS (20)
  1. FLIVAS OD [Concomitant]
     Route: 048
     Dates: start: 20111128
  2. PREDNISOLONE [Concomitant]
     Route: 048
     Dates: start: 20120326
  3. PREDNISOLONE [Concomitant]
     Route: 048
     Dates: start: 20120329
  4. PREDNISOLONE [Concomitant]
     Route: 048
     Dates: start: 20120402
  5. TELAVIC (TELAPREVIR) [Suspect]
     Route: 048
     Dates: start: 20120508, end: 20120514
  6. CALBLOCK [Concomitant]
     Route: 048
     Dates: start: 20110530, end: 20120430
  7. PREDNISOLONE [Concomitant]
     Route: 048
     Dates: start: 20120323
  8. TELAVIC (TELAPREVIR) [Suspect]
     Route: 048
     Dates: start: 20120501, end: 20120507
  9. PEG-INTRON [Concomitant]
     Route: 048
     Dates: start: 20120319
  10. PREDNISOLONE [Concomitant]
     Route: 048
     Dates: start: 20120415
  11. CANDESARTAN CILEXETIL [Concomitant]
     Route: 048
     Dates: start: 20120416, end: 20120528
  12. FLAVOXATE HYDROCHLORIDE [Concomitant]
     Route: 048
     Dates: start: 20120222
  13. TELAVIC (TELAPREVIR) [Suspect]
     Indication: HEPATITIS C
     Route: 048
     Dates: start: 20120319
  14. CANDESARTAN CILEXETIL [Concomitant]
     Route: 048
     Dates: start: 20120202, end: 20120415
  15. RIBAVIRIN [Concomitant]
     Indication: HEPATITIS C
     Route: 048
     Dates: start: 20120319, end: 20120514
  16. PREDNISOLONE [Concomitant]
     Route: 048
     Dates: start: 20120409
  17. URSO 250 [Concomitant]
     Route: 048
     Dates: start: 20120416, end: 20120514
  18. PREDNISOLONE [Concomitant]
     Route: 048
     Dates: start: 20120423
  19. NAUZELIN OD [Concomitant]
     Route: 048
     Dates: start: 20120319
  20. OLOPATADINE HCL [Concomitant]
     Route: 048
     Dates: start: 20120319, end: 20120402

REACTIONS (3)
  - DIABETES MELLITUS [None]
  - RENAL IMPAIRMENT [None]
  - ANAEMIA [None]
